FAERS Safety Report 13001691 (Version 4)
Quarter: 2017Q1

REPORT INFORMATION
  Report Type: Spontaneous
  Country: FR (occurrence: FR)
  Receive Date: 20161206
  Receipt Date: 20170124
  Transmission Date: 20170428
  Serious: Yes (Other)
  Sender: FDA-Public Use
  Company Number: FR-009507513-1612FRA000577

PATIENT
  Age: 88 Year
  Sex: Female

DRUGS (3)
  1. KEYTRUDA [Suspect]
     Active Substance: PEMBROLIZUMAB
     Dosage: 116 MG EVERY 21 DAYS, CYCLE 3
     Route: 042
     Dates: start: 20161110
  2. KEYTRUDA [Suspect]
     Active Substance: PEMBROLIZUMAB
     Indication: MALIGNANT MELANOMA
     Dosage: 116 MG EVERY 21 DAYS, CYCLE 1
     Route: 042
     Dates: start: 20160930
  3. KEYTRUDA [Suspect]
     Active Substance: PEMBROLIZUMAB
     Dosage: 116 MG EVERY 21 DAYS, CYCLE 2
     Route: 042
     Dates: start: 20161024

REACTIONS (2)
  - Dermatitis bullous [Recovered/Resolved]
  - Lymphangiectasia [Recovered/Resolved]

NARRATIVE: CASE EVENT DATE: 20161025
